FAERS Safety Report 22320645 (Version 1)
Quarter: 2023Q2

REPORT INFORMATION
  Report Type: Report from Study
  Country: US (occurrence: US)
  Receive Date: 20230515
  Receipt Date: 20230515
  Transmission Date: 20230722
  Serious: Yes (Hospitalization)
  Sender: FDA-Public Use
  Company Number: US-BAYER-2023A062625

PATIENT
  Age: 52 Year
  Sex: Female

DRUGS (1)
  1. STIVARGA [Suspect]
     Active Substance: REGORAFENIB
     Dosage: 120 MG, QD FOR 21 DAYS ON 7 DAYS OFF
     Route: 048

REACTIONS (4)
  - Breast swelling [None]
  - Peripheral swelling [None]
  - Pain [None]
  - Off label use [None]

NARRATIVE: CASE EVENT DATE: 20230430
